FAERS Safety Report 10241607 (Version 4)
Quarter: 2015Q2

REPORT INFORMATION
  Report Type: Spontaneous
  Country: US (occurrence: US)
  Receive Date: 20140617
  Receipt Date: 20150520
  Transmission Date: 20150821
  Serious: Yes (Hospitalization, Disabling)
  Sender: FDA-Public Use
  Company Number: US-MERCK-1406USA007819

PATIENT
  Sex: Male
  Weight: 95.24 kg

DRUGS (4)
  1. PROSCAR [Suspect]
     Active Substance: FINASTERIDE
     Dosage: 5 MG BROKEN IN HALF, 2.5 TAKEN QD
     Route: 048
     Dates: start: 201007, end: 20100913
  2. FINASTERIDE. [Suspect]
     Active Substance: FINASTERIDE
     Indication: ANDROGENETIC ALOPECIA
     Dosage: 1.25 UNK, UNK
     Route: 048
     Dates: start: 2006, end: 2010
  3. FINASTERIDE. [Suspect]
     Active Substance: FINASTERIDE
     Indication: ANDROGENETIC ALOPECIA
     Dosage: 5 MG
     Route: 048
     Dates: start: 20100614, end: 20100906
  4. PROSCAR [Suspect]
     Active Substance: FINASTERIDE
     Indication: ANDROGENETIC ALOPECIA
     Dosage: 1.25 UNK, UNK
     Route: 048
     Dates: start: 2000, end: 2006

REACTIONS (42)
  - Sexual dysfunction [Not Recovered/Not Resolved]
  - Erectile dysfunction [Not Recovered/Not Resolved]
  - Wrong technique in drug usage process [Unknown]
  - Bladder dysfunction [Unknown]
  - Nasal septal operation [Unknown]
  - Ejaculation failure [Not Recovered/Not Resolved]
  - Urethral stenosis [Unknown]
  - Cellulitis [Unknown]
  - Urinary retention [Unknown]
  - Subcutaneous abscess [Unknown]
  - Anxiety [Not Recovered/Not Resolved]
  - Ejaculation disorder [Not Recovered/Not Resolved]
  - Wrong technique in drug usage process [Unknown]
  - Bladder neck obstruction [Unknown]
  - Muscle strain [Unknown]
  - Inadequate diet [Unknown]
  - Off label use [Unknown]
  - Onychomycosis [Unknown]
  - Nocturia [Unknown]
  - Adverse drug reaction [Unknown]
  - Dermal cyst [Unknown]
  - Urinary retention [Unknown]
  - Pollakiuria [Unknown]
  - Organic erectile dysfunction [Unknown]
  - Lipoma [Unknown]
  - Feeling abnormal [Not Recovered/Not Resolved]
  - Hypogonadism [Unknown]
  - Obstructive uropathy [Unknown]
  - Dizziness [Unknown]
  - Varicocele [Unknown]
  - Penile curvature [Unknown]
  - Micturition urgency [Unknown]
  - Cognitive disorder [Not Recovered/Not Resolved]
  - Depression [Not Recovered/Not Resolved]
  - Libido decreased [Not Recovered/Not Resolved]
  - Incorrect dose administered [Unknown]
  - Attention deficit/hyperactivity disorder [Unknown]
  - Incorrect dose administered [Unknown]
  - Benign prostatic hyperplasia [Unknown]
  - Drug administration error [Unknown]
  - Limb injury [Unknown]
  - Drug ineffective [Unknown]

NARRATIVE: CASE EVENT DATE: 2000
